FAERS Safety Report 17059013 (Version 1)
Quarter: 2019Q4

REPORT INFORMATION
  Report Type: Spontaneous
  Country: US (occurrence: US)
  Receive Date: 20191023
  Receipt Date: 20191023
  Transmission Date: 20200122
  Serious: Yes (Hospitalization)
  Sender: FDA-Public Use
  Company Number: None

PATIENT
  Sex: Female

DRUGS (14)
  1. TACROLIMUS 0.5MG [Suspect]
     Active Substance: TACROLIMUS
     Indication: RENAL TRANSPLANT
     Dosage: ?          OTHER DOSE:0.5MG;?
     Route: 048
     Dates: start: 20181001
  2. SEVELAMAR [Concomitant]
  3. LOSARTAN. [Concomitant]
     Active Substance: LOSARTAN
  4. CALCITRIOL. [Concomitant]
     Active Substance: CALCITRIOL
  5. ATORVASTATIN [Concomitant]
     Active Substance: ATORVASTATIN
  6. FUROSEMIDE. [Concomitant]
     Active Substance: FUROSEMIDE
  7. MEGESTROL AC [Concomitant]
  8. DULOXETINE. [Concomitant]
     Active Substance: DULOXETINE
  9. TRAZODONE [Concomitant]
     Active Substance: TRAZODONE HYDROCHLORIDE
  10. PROAIR HFA [Concomitant]
     Active Substance: ALBUTEROL SULFATE
  11. LETROZOLE. [Concomitant]
     Active Substance: LETROZOLE
  12. ALPRAZOLAM. [Concomitant]
     Active Substance: ALPRAZOLAM
  13. CONTOUR KIT NEXT [Concomitant]
  14. GABAPENTIN. [Concomitant]
     Active Substance: GABAPENTIN

REACTIONS (1)
  - Surgery [None]
